FAERS Safety Report 6164665-9 (Version None)
Quarter: 2009Q2

REPORT INFORMATION
  Report Type: 
  Country: None (occurrence: None)
  Receive Date: 20090423
  Receipt Date: 20090417
  Transmission Date: 20091009
  Serious: Yes (Other)
  Sender: FDA-Public Use
  Company Number: US-ASTRAZENECA-2009UW09713

PATIENT
  Sex: Male
  Weight: 104.3 kg

DRUGS (1)
  1. NEXIUM [Suspect]
     Indication: COUGH
     Route: 048
     Dates: start: 20090320

REACTIONS (1)
  - DEEP VEIN THROMBOSIS [None]
